FAERS Safety Report 6807684-9 (Version None)
Quarter: 2010Q2

REPORT INFORMATION
  Report Type: 
  Country: None (occurrence: None)
  Receive Date: 20100629
  Receipt Date: 20090608
  Transmission Date: 20101027
  Serious: No
  Sender: FDA-Public Use
  Company Number: US-PFIZER INC-2008081944

PATIENT
  Sex: Male
  Weight: 93.6 kg

DRUGS (2)
  1. VIAGRA [Suspect]
     Indication: ERECTILE DYSFUNCTION
     Dosage: 50 MG, AS NEEDED
     Route: 048
     Dates: start: 19980701
  2. THYROID TAB [Concomitant]
     Indication: THYROID DISORDER

REACTIONS (4)
  - DRUG INEFFECTIVE [None]
  - FOOD INTERACTION [None]
  - HEADACHE [None]
  - PENIS DISORDER [None]
